FAERS Safety Report 7993905-6 (Version None)
Quarter: 2011Q4

REPORT INFORMATION
  Report Type: 
  Country: None (occurrence: None)
  Receive Date: 20111215
  Receipt Date: 20111201
  Transmission Date: 20120403
  Serious: Yes (Hospitalization)
  Sender: FDA-Public Use
  Company Number: 1000026159

PATIENT
  Age: 89 Year
  Sex: Female

DRUGS (19)
  1. ESCITALOPRAM OXALATE [Suspect]
     Dosage: 1 DOSAGE FORM (1 DOSAGE FORMS, 1 IN 1 D), ORAL
     Route: 048
     Dates: end: 20111031
  2. LASILIX (FUROSEMIDE) (40 MILLIGRAM, TABLETS) (FUROSEMIDE) [Concomitant]
  3. PARACETAMOL (PARACETAMOL) (1 GRAM) (PARACETAMOL) [Concomitant]
  4. MOPRAL (OMEPRAZOLE) (20 MILLIGRAM, TABLETS) (OMEPRAZOLE) [Concomitant]
  5. OXYGEN (OXYGEN) (INHALANT) (OXYGEN) [Concomitant]
  6. AMLOR (AMLODIPINE BESILATE) (5 MILLIGRAM, CAPSULES) (AMLODIPINE BESILA [Concomitant]
  7. ZESTRIL (LISINOPRIL (20 MILLIGRAM, TABLETS) (LISINOPRIL) [Concomitant]
  8. TAVANIC (LEVOFLOXACIN) (500 MILLIGRAM, TABLETS) (LEVOFLOXACIN) [Concomitant]
  9. STILNOX (ZOLPIDEM TARTRATE) (10 MILLIGRAM, TABLETS) (ZOLPIDEM TARTRATE [Concomitant]
  10. EUPANTOL (PANTOPRAZOLE SODIUM SESQUIHYDRATE) (40 MILLIGRAM, POWDER) (P [Concomitant]
  11. ADENURIC (FEBUXOSTAT) (80 MILLIGRAM, TABLETS) (FEBUXOSTAT) [Concomitant]
  12. DUROGESIC (FENTANYL) (POULTICE OR PATCH) (FENTANYL) [Concomitant]
  13. ROCEPHINE (CEFTRIAXONE SODIUM) (1 GRAM) (CEFTRIAXONE SODIUM) [Concomitant]
  14. ANAFRANIL (CLOMIPRAMINE HYDROCHLORIDE) (25 MILLIGRAM, TABLETS) (CLOMIP [Concomitant]
  15. SPECIAFOLDINE (FOLIC ACID) (5 MILLIGRAM, TABLETS) (FOLIC ACID) [Concomitant]
  16. KETOPROFEN [Suspect]
     Indication: SCIATICA
     Dosage: 1 DOSAGE FORM (1 DOSAGE FORMS, 1 IN 1 D)
     Dates: start: 20111018, end: 20111023
  17. PREVISCAN (FLUINDIONE) (20 MILLIGRAM, TABLETS) [Suspect]
     Indication: THROMBOSIS PROPHYLAXIS
     Dosage: 1.5 DOSAGE FORM (1.5 DOSAGE FORMS, 1 IN 1 D), ORAL
     Route: 048
  18. TRACLEER (BOSENTAN) (125 MILLIGRAM, TABLETS) (BOSENTAN) [Concomitant]
  19. AERIUS (DESLORATADINE) (5 MILLIGRAM, TABLETS) (DESLORATADINE) [Concomitant]

REACTIONS (7)
  - MELAENA [None]
  - GASTROINTESTINAL ULCER HAEMORRHAGE [None]
  - DRUG EFFECT DECREASED [None]
  - URINARY TRACT INFECTION [None]
  - ANAEMIA [None]
  - LUNG INFECTION [None]
  - HAEMOGLOBIN DECREASED [None]
